FAERS Safety Report 8076504-X (Version None)
Quarter: 2012Q1

REPORT INFORMATION
  Report Type: 
  Country: None (occurrence: None)
  Receive Date: 20120127
  Receipt Date: 20120112
  Transmission Date: 20120608
  Serious: Yes (Hospitalization)
  Sender: FDA-Public Use
  Company Number: DE-CELGENEUS-062-21880-11123512

PATIENT
  Age: 71 Year
  Sex: Female
  Weight: 92 kg

DRUGS (10)
  1. TRAMADOL HCL [Concomitant]
     Dosage: 200 MILLIGRAM
     Route: 048
  2. DEXAMETHASONE [Suspect]
     Indication: MULTIPLE MYELOMA
     Dosage: 40 MILLIGRAM
     Route: 048
     Dates: start: 20111215, end: 20111222
  3. REVLIMID [Suspect]
     Dosage: 25 MILLIGRAM
     Route: 048
     Dates: start: 20120111
  4. MICTONORM [Concomitant]
     Dosage: 30 MILLIGRAM
     Route: 048
  5. REVLIMID [Suspect]
     Indication: MULTIPLE MYELOMA
     Dosage: 25 MILLIGRAM
     Route: 048
     Dates: start: 20111215, end: 20111225
  6. ENOXAPARIN SODIUM [Concomitant]
     Indication: THROMBOSIS PROPHYLAXIS
     Dosage: .4 MILLILITER
     Route: 058
     Dates: start: 20111215
  7. COTRIM DS [Concomitant]
     Indication: PROPHYLAXIS
     Dosage: 1720 MILLIGRAM
     Route: 048
     Dates: start: 20111215
  8. LEVOFLOXACIN [Concomitant]
     Dosage: 500 MILLIGRAM
     Route: 048
     Dates: start: 20111222
  9. LASIX [Concomitant]
     Dosage: 40 MILLIGRAM
     Route: 048
  10. ACYCLOVIR [Concomitant]
     Indication: PROPHYLAXIS
     Dosage: 1600 MILLIGRAM
     Route: 048
     Dates: start: 20111215

REACTIONS (3)
  - RADIUS FRACTURE [None]
  - FEMUR FRACTURE [None]
  - SEROMA [None]
